FAERS Safety Report 21880215 (Version 1)
Quarter: 2023Q1

REPORT INFORMATION
  Report Type: Spontaneous
  Country: GB (occurrence: GB)
  Receive Date: 20230118
  Receipt Date: 20230118
  Transmission Date: 20230417
  Serious: Yes (Life-Threatening)
  Sender: FDA-Public Use
  Company Number: GB-MHRA-MED-202301061537436600-RNDBP

PATIENT
  Age: 65 Year
  Sex: Male
  Weight: 57 kg

DRUGS (7)
  1. CISPLATIN [Suspect]
     Active Substance: CISPLATIN
     Indication: Adverse drug reaction
     Dosage: 172MG ;
     Route: 065
     Dates: start: 20221212, end: 20221212
  2. CISPLATIN [Suspect]
     Active Substance: CISPLATIN
     Indication: Squamous cell carcinoma of the tongue
  3. APREPITANT [Concomitant]
     Active Substance: APREPITANT
     Indication: Product used for unknown indication
  4. DEXAMETHASONE [Concomitant]
     Active Substance: DEXAMETHASONE
     Indication: Product used for unknown indication
  5. METOCLOPRAMIDE [Concomitant]
     Active Substance: METOCLOPRAMIDE
     Indication: Product used for unknown indication
  6. MORPHINE [Concomitant]
     Active Substance: MORPHINE
     Indication: Product used for unknown indication
  7. OMEPRAZOLE [Concomitant]
     Active Substance: OMEPRAZOLE
     Indication: Product used for unknown indication

REACTIONS (1)
  - Supraventricular tachycardia [Recovered/Resolved]

NARRATIVE: CASE EVENT DATE: 20221215
